FAERS Safety Report 21959589 (Version 1)
Quarter: 2023Q1

REPORT INFORMATION
  Report Type: Spontaneous
  Country: DE (occurrence: DE)
  Receive Date: 20230206
  Receipt Date: 20230206
  Transmission Date: 20230418
  Serious: Yes (Hospitalization)
  Sender: FDA-Public Use
  Company Number: DE-JNJFOC-20230144598

PATIENT
  Sex: Male
  Weight: 73 kg

DRUGS (17)
  1. PREDNISOLONE [Suspect]
     Active Substance: PREDNISOLONE
     Indication: Product used for unknown indication
  2. RITUXIMAB [Suspect]
     Active Substance: RITUXIMAB
     Indication: Product used for unknown indication
  3. VELCADE [Suspect]
     Active Substance: BORTEZOMIB
     Indication: Product used for unknown indication
  4. CYCLOPHOSPHAMIDE [Suspect]
     Active Substance: CYCLOPHOSPHAMIDE
     Indication: Product used for unknown indication
  5. LIPEGFILGRASTIM [Suspect]
     Active Substance: LIPEGFILGRASTIM
     Indication: Product used for unknown indication
  6. DOXORUBICIN [Suspect]
     Active Substance: DOXORUBICIN
     Indication: Product used for unknown indication
     Dosage: LIPOSOME INJECTION
  7. PANTOPRAZOLE [Concomitant]
     Active Substance: PANTOPRAZOLE
  8. OLODATEROL HYDROCHLORIDE\TIOTROPIUM BROMIDE MONOHYDRATE [Concomitant]
     Active Substance: OLODATEROL HYDROCHLORIDE\TIOTROPIUM BROMIDE MONOHYDRATE
  9. AMPHOTERICIN B [Concomitant]
     Active Substance: AMPHOTERICIN B
     Dosage: 50 MG
  10. SULFAMETHOXAZOLE\TRIMETHOPRIM [Concomitant]
     Active Substance: SULFAMETHOXAZOLE\TRIMETHOPRIM
  11. FUROSEMIDE [Concomitant]
     Active Substance: FUROSEMIDE
  12. BISOPROLOL [Concomitant]
     Active Substance: BISOPROLOL
  13. ASPIRIN [Concomitant]
     Active Substance: ASPIRIN
  14. PANCREATIN [Concomitant]
     Active Substance: PANCRELIPASE
  15. SIMVASTATIN [Concomitant]
     Active Substance: SIMVASTATIN
  16. MUCOFALK APPLE [Concomitant]
  17. MORPHINE [Concomitant]
     Active Substance: MORPHINE

REACTIONS (4)
  - Herpes zoster [Unknown]
  - General physical health deterioration [Unknown]
  - Febrile infection [Unknown]
  - Headache [Unknown]
